FAERS Safety Report 14080012 (Version 2)
Quarter: 2017Q4

REPORT INFORMATION
  Report Type: Report from Study
  Country: CA (occurrence: CA)
  Receive Date: 20171012
  Receipt Date: 20171113
  Transmission Date: 20180321
  Serious: Yes (Other)
  Sender: FDA-Public Use
  Company Number: CA-TEVA-812665ACC

PATIENT
  Age: 70 Year
  Sex: Male

DRUGS (15)
  1. VENTOLIN [Concomitant]
     Active Substance: ALBUTEROL SULFATE
  2. LATANOPROST. [Concomitant]
     Active Substance: LATANOPROST
  3. CINQAIR [Suspect]
     Active Substance: RESLIZUMAB
     Indication: ASTHMA
     Dosage: CINQAIR 10MG/ML, LAST ADMINISTRATION DATE BEFORE THE ADVERSE EVENT: 07-SEP-2017
     Route: 042
     Dates: start: 20170713
  4. PREDNISONE. [Suspect]
     Active Substance: PREDNISONE
     Indication: PRODUCT USED FOR UNKNOWN INDICATION
  5. SPIRIVA [Concomitant]
     Active Substance: TIOTROPIUM BROMIDE MONOHYDRATE
  6. CINQAIR [Suspect]
     Active Substance: RESLIZUMAB
     Dosage: CINQAIR 10MG/ML, LAST ADMINISTRATION DATE BEFORE THE ADVERSE EVENT: 05-OCT-2017
     Route: 042
     Dates: start: 20170713
  7. AMLODIPINE [Concomitant]
     Active Substance: AMLODIPINE BESYLATE
  8. IRON [Concomitant]
     Active Substance: IRON
  9. ZOPICLONE [Concomitant]
     Active Substance: ZOPICLONE
  10. ADVAIR HFA [Concomitant]
     Active Substance: FLUTICASONE PROPIONATE\SALMETEROL XINAFOATE
  11. CICLESONIDE [Concomitant]
     Active Substance: CICLESONIDE
  12. VENTOLIN [Concomitant]
     Active Substance: ALBUTEROL SULFATE
  13. ATORVASTATIN [Concomitant]
     Active Substance: ATORVASTATIN
  14. RABEPRAZOLE [Concomitant]
     Active Substance: RABEPRAZOLE
  15. SIMBRINZA [Concomitant]
     Active Substance: BRIMONIDINE TARTRATE\BRINZOLAMIDE

REACTIONS (6)
  - Cataract operation [Recovering/Resolving]
  - Dyspnoea [Recovered/Resolved]
  - Cataract operation [Recovering/Resolving]
  - Wheezing [Recovered/Resolved]
  - Blindness [Recovering/Resolving]
  - Asthma [Unknown]

NARRATIVE: CASE EVENT DATE: 2017
